FAERS Safety Report 7793845-1 (Version None)
Quarter: 2011Q4

REPORT INFORMATION
  Report Type: 
  Country: None (occurrence: None)
  Receive Date: 20111004
  Receipt Date: 20110926
  Transmission Date: 20120403
  Serious: Yes (Hospitalization)
  Sender: FDA-Public Use
  Company Number: US-BIOGENIDEC-2011BI022857

PATIENT
  Age: 48 Year
  Sex: Female

DRUGS (2)
  1. TYSABRI [Suspect]
     Indication: MULTIPLE SCLEROSIS
     Route: 042
     Dates: start: 20070504, end: 20100331
  2. TYSABRI [Suspect]
     Route: 042
     Dates: start: 20101104

REACTIONS (8)
  - MENINGITIS BACTERIAL [None]
  - BRONCHITIS [None]
  - CLUSTER HEADACHE [None]
  - DEPRESSION [None]
  - MULTIPLE SCLEROSIS RELAPSE [None]
  - MEMORY IMPAIRMENT [None]
  - GENERAL SYMPTOM [None]
  - MIGRAINE [None]
